FAERS Safety Report 5901246-3 (Version None)
Quarter: 2008Q3

REPORT INFORMATION
  Report Type: 
  Country: None (occurrence: None)
  Receive Date: 20080929
  Receipt Date: 20080707
  Transmission Date: 20090109
  Serious: No
  Sender: FDA-Public Use
  Company Number: US-BRISTOL-MYERS SQUIBB COMPANY-14252530

PATIENT
  Sex: Female

DRUGS (2)
  1. ORENCIA [Suspect]
     Dosage: TAKEN 3 MONTHS AGO
     Dates: start: 20080101
  2. METHOTREXATE [Concomitant]

REACTIONS (2)
  - DERMATITIS ALLERGIC [None]
  - PRURITUS [None]
